FAERS Safety Report 4876883-8 (Version None)
Quarter: 2006Q1

REPORT INFORMATION
  Report Type: 
  Country: None (occurrence: None)
  Receive Date: 20060110
  Receipt Date: 20050819
  Transmission Date: 20060701
  Serious: Yes (Life-Threatening, Hospitalization)
  Sender: FDA-Public Use
  Company Number: DE-SANOFI-SYNTHELABO-A04200500709

PATIENT
  Sex: Male
  Weight: 65 kg

DRUGS (11)
  1. PLAVIX [Suspect]
     Indication: STENT PLACEMENT
     Route: 048
     Dates: start: 20050729, end: 20050818
  2. DILATREND [Concomitant]
     Indication: DRUG USE FOR UNKNOWN INDICATION
     Route: 048
  3. ASPIRIN [Concomitant]
     Indication: DRUG USE FOR UNKNOWN INDICATION
     Route: 048
  4. MARCUMAR [Concomitant]
     Indication: DRUG USE FOR UNKNOWN INDICATION
     Route: 048
  5. MORONAL [Concomitant]
     Dosage: UNK
     Route: 048
  6. FUROSEMIDE [Concomitant]
     Dosage: UNK
     Route: 048
  7. PANTOZOL [Concomitant]
     Dosage: UNK
     Route: 048
  8. TAVANIC 250 [Concomitant]
     Route: 048
  9. NOVODIGAL [Concomitant]
     Route: 048
  10. PASPERTIN [Concomitant]
     Dosage: UNK
     Route: 041
  11. DECORTIN [Concomitant]
     Indication: DRUG USE FOR UNKNOWN INDICATION
     Dosage: 75 MG
     Route: 048

REACTIONS (3)
  - ANAEMIA HAEMOLYTIC AUTOIMMUNE [None]
  - COOMBS POSITIVE HAEMOLYTIC ANAEMIA [None]
  - GENERAL PHYSICAL HEALTH DETERIORATION [None]
